FAERS Safety Report 9472405 (Version 2)
Quarter: 2013Q3

REPORT INFORMATION
  Report Type: Spontaneous
  Country: US (occurrence: US)
  Receive Date: 20130823
  Receipt Date: 20130926
  Transmission Date: 20140515
  Serious: Yes (Other)
  Sender: FDA-Public Use
  Company Number: US-PFIZER INC-2013242299

PATIENT
  Age: 60 Year
  Sex: Male

DRUGS (1)
  1. SUTENT [Suspect]
     Indication: RENAL CANCER
     Dosage: 25 MG, CYCLIC (DAILY ON 4 WEEKS WITH 2 WEEKS OFF)
     Route: 048
     Dates: start: 20120818, end: 20130820

REACTIONS (1)
  - Myocardial infarction [Unknown]
